FAERS Safety Report 24005085 (Version 1)
Quarter: 2024Q2

REPORT INFORMATION
  Report Type: Spontaneous
  Country: BR (occurrence: BR)
  Receive Date: 20240624
  Receipt Date: 20240624
  Transmission Date: 20240716
  Serious: Yes (Other)
  Sender: FDA-Public Use
  Company Number: BR-002147023-NVSC2024BR128829

PATIENT
  Sex: Male

DRUGS (1)
  1. BETOPTIC [Suspect]
     Active Substance: BETAXOLOL HYDROCHLORIDE
     Indication: Intraocular pressure increased
     Dosage: UNK (0.5% BOTTLE SOLUTION WITH 5ML, 5.6 MG)
     Route: 065

REACTIONS (2)
  - Ocular hypertension [Unknown]
  - Product availability issue [Unknown]
